FAERS Safety Report 15678917 (Version 1)
Quarter: 2018Q4

REPORT INFORMATION
  Report Type: Spontaneous
  Country: AU (occurrence: AU)
  Receive Date: 20181202
  Receipt Date: 20181202
  Transmission Date: 20190205
  Serious: Yes (Other)
  Sender: FDA-Public Use
  Company Number: AU-BAXTER-2018BAX029148

PATIENT
  Age: 46 Year

DRUGS (5)
  1. PACLITAXEL. [Suspect]
     Active Substance: PACLITAXEL
     Indication: PRODUCT USED FOR UNKNOWN INDICATION
     Dosage: FIRST DOSE OF PACLITAXEL
     Route: 065
  2. PACLITAXEL. [Suspect]
     Active Substance: PACLITAXEL
     Dosage: DOSE RE-INTRODUCED
     Route: 065
  3. PACLITAXEL. [Suspect]
     Active Substance: PACLITAXEL
     Dosage: SECOND DOSE OF PACLITAXEL COMPOUNDED WITH 0.9% OF SODIUM CHLORIDE
     Route: 065
     Dates: start: 20181026, end: 20181026
  4. SODIUM CHLORIDE (VIAFLO) 1000ML [Suspect]
     Active Substance: SODIUM CHLORIDE
     Dosage: DOSE RE-INTRODUCED
     Route: 065
  5. SODIUM CHLORIDE (VIAFLO) 1000ML [Suspect]
     Active Substance: SODIUM CHLORIDE
     Indication: MEDICATION DILUTION
     Dosage: SECOND DOSE COMPOUNDED WITH PACLITAXEL
     Route: 065
     Dates: start: 20181026, end: 20181026

REACTIONS (3)
  - Hot flush [Unknown]
  - Chest discomfort [Unknown]
  - Erythema [Unknown]

NARRATIVE: CASE EVENT DATE: 20181026
